FAERS Safety Report 6408922-7 (Version None)
Quarter: 2009Q4

REPORT INFORMATION
  Report Type: 
  Country: None (occurrence: None)
  Receive Date: 20091021
  Receipt Date: 20091009
  Transmission Date: 20100525
  Serious: Yes (Other)
  Sender: FDA-Public Use
  Company Number: ES-ELI_LILLY_AND_COMPANY-ES200910003180

PATIENT
  Age: 11 Year
  Sex: Male

DRUGS (3)
  1. STRATTERA [Suspect]
     Indication: ATTENTION DEFICIT/HYPERACTIVITY DISORDER
     Dosage: 18 MG, UNKNOWN
     Route: 048
     Dates: start: 20090803, end: 20090809
  2. STRATTERA [Suspect]
     Dosage: 40 MG, UNKNOWN
     Route: 048
     Dates: start: 20090810, end: 20090925
  3. STRATTERA [Suspect]
     Dosage: 60 MG, UNKNOWN
     Route: 048
     Dates: start: 20090926

REACTIONS (5)
  - AGGRESSION [None]
  - ARRHYTHMIA [None]
  - CHEST PAIN [None]
  - NASOPHARYNGITIS [None]
  - NERVOUSNESS [None]
